FAERS Safety Report 14296247 (Version 1)
Quarter: 2017Q4

REPORT INFORMATION
  Report Type: Spontaneous
  Country: IL (occurrence: IL)
  Receive Date: 20171218
  Receipt Date: 20171218
  Transmission Date: 20180321
  Serious: Yes (Other)
  Sender: FDA-Public Use
  Company Number: IL-ALLERGAN-1770954US

PATIENT
  Age: 7 Decade
  Sex: Female

DRUGS (2)
  1. MILNACIPRAN - BP [Suspect]
     Active Substance: MILNACIPRAN
     Indication: DEPRESSION
  2. MILNACIPRAN - BP [Suspect]
     Active Substance: MILNACIPRAN
     Indication: FIBROMYALGIA
     Dosage: 25 MG, BID
     Route: 048

REACTIONS (3)
  - Off label use [Unknown]
  - Drug titration error [Unknown]
  - Psychotic disorder [Unknown]
